FAERS Safety Report 24072675 (Version 1)
Quarter: 2024Q3

REPORT INFORMATION
  Report Type: Report from Study
  Country: US (occurrence: US)
  Receive Date: 20240710
  Receipt Date: 20240710
  Transmission Date: 20241017
  Serious: Yes (Other)
  Sender: AMGEN
  Company Number: US-AMGEN-USASL2024130287

PATIENT
  Age: 77 Year
  Sex: Female

DRUGS (1)
  1. XGEVA [Suspect]
     Active Substance: DENOSUMAB
     Indication: Plasma cell myeloma
     Dosage: UNK, QMO
     Route: 065

REACTIONS (14)
  - Gingival erythema [Unknown]
  - Gingival swelling [Unknown]
  - Tooth loss [Unknown]
  - Loose tooth [Unknown]
  - Toothache [Not Recovered/Not Resolved]
  - Osteomyelitis [Unknown]
  - Tooth infection [Not Recovered/Not Resolved]
  - Depression [Unknown]
  - Emotional distress [Unknown]
  - Frustration tolerance decreased [Unknown]
  - Dental restoration failure [Unknown]
  - Fall [Unknown]
  - Weight decreased [Unknown]
  - Device placement issue [Unknown]

NARRATIVE: CASE EVENT DATE: 20230101
